FAERS Safety Report 5645983-7 (Version None)
Quarter: 2008Q1

REPORT INFORMATION
  Report Type: 
  Country: None (occurrence: None)
  Receive Date: 20080131
  Receipt Date: 20071207
  Transmission Date: 20080703
  Serious: Yes (Hospitalization, Other)
  Sender: FDA-Public Use
  Company Number: 163-21880-07120504

PATIENT
  Age: 78 Year
  Sex: Male

DRUGS (6)
  1. REVLIMID [Suspect]
     Indication: MYELODYSPLASTIC SYNDROME
     Dosage: 10 MG, DAILY X21 DAYS 2/7 DAYS REST, ORAL ; DAILY X14 DAYS  W/14 DAYS, REST,ORAL
     Route: 048
     Dates: start: 20070701, end: 20070917
  2. REVLIMID [Suspect]
     Indication: MYELODYSPLASTIC SYNDROME
     Dosage: 10 MG, DAILY X21 DAYS 2/7 DAYS REST, ORAL ; DAILY X14 DAYS  W/14 DAYS, REST,ORAL
     Route: 048
     Dates: start: 20071029
  3. EXJADE [Concomitant]
  4. ALLOPURINOL [Concomitant]
  5. WARFARIN SODIUM [Concomitant]
  6. FUROSEMIDE [Concomitant]

REACTIONS (4)
  - NEUTROPENIA [None]
  - PANCYTOPENIA [None]
  - PYREXIA [None]
  - THROMBOCYTOPENIA [None]
